FAERS Safety Report 21363343 (Version 1)
Quarter: 2022Q3

REPORT INFORMATION
  Report Type: Spontaneous
  Country: CA (occurrence: CA)
  Receive Date: 20220922
  Receipt Date: 20220922
  Transmission Date: 20221027
  Serious: Yes (Other)
  Sender: FDA-Public Use
  Company Number: CA-CELLTRION INC.-2015CA012667

PATIENT

DRUGS (11)
  1. INFLIXIMAB [Suspect]
     Active Substance: INFLIXIMAB
     Indication: Psoriatic arthropathy
     Dosage: 300 MG, Q 0, 2,6 WEEKS THENEVERY 8 WEEKS FOR 12 MONTHS
     Route: 041
     Dates: start: 20151013
  2. INFLIXIMAB [Suspect]
     Active Substance: INFLIXIMAB
     Dosage: 300 MG, Q 0, 2,6 WEEKS THENEVERY 8 WEEKS FOR 12 MONTHS
     Route: 041
     Dates: start: 20151013
  3. INFLIXIMAB [Suspect]
     Active Substance: INFLIXIMAB
     Dosage: 500 MG, Q 6 WEEKS, THEN EVERY 6 WEEKS FOR 12 MONTHS
     Route: 041
     Dates: start: 20151013
  4. INFLIXIMAB [Suspect]
     Active Substance: INFLIXIMAB
     Dosage: 500 MG, Q 6 WEEKS, THEN EVERY 6 WEEKS FOR 12 MONTHS
     Route: 041
     Dates: start: 20151013
  5. INFLIXIMAB [Suspect]
     Active Substance: INFLIXIMAB
     Dosage: 500 MG, Q 6WEEKS, THEN EVERY 6 WEEKS FOR 12 MONTHS
     Route: 041
  6. INFLIXIMAB [Suspect]
     Active Substance: INFLIXIMAB
     Dosage: 500 MG, Q 6WEEKS, THEN EVERY 6 WEEKS FOR 12 MONTHS
     Route: 041
  7. ENBREL [Concomitant]
     Active Substance: ETANERCEPT
     Dosage: WEEKLY
     Route: 065
  8. ENBREL [Concomitant]
     Active Substance: ETANERCEPT
     Dosage: UNK UNK, WEEKLY
  9. HUMIRA [Concomitant]
     Active Substance: ADALIMUMAB
     Dosage: UNK
     Route: 065
  10. HUMIRA [Concomitant]
     Active Substance: ADALIMUMAB
     Dosage: UNK
  11. CELEBREX [Concomitant]
     Active Substance: CELECOXIB
     Dosage: 200 MG, 2X/DAY
     Route: 065
     Dates: start: 20150101

REACTIONS (14)
  - Psoriatic arthropathy [Recovering/Resolving]
  - Peripheral swelling [Recovering/Resolving]
  - Pruritus [Recovered/Resolved]
  - Head discomfort [Recovered/Resolved]
  - Flushing [Recovered/Resolved]
  - Heart rate increased [Recovered/Resolved]
  - Infection [Unknown]
  - Extravasation [Unknown]
  - Psoriatic arthropathy [Recovering/Resolving]
  - Condition aggravated [Recovering/Resolving]
  - Peripheral swelling [Recovering/Resolving]
  - Extravasation [Unknown]
  - Pain in extremity [Unknown]
  - Extravasation [Unknown]

NARRATIVE: CASE EVENT DATE: 20151001
